FAERS Safety Report 15892936 (Version 1)
Quarter: 2019Q1

REPORT INFORMATION
  Report Type: Report from Study
  Country: US (occurrence: US)
  Receive Date: 20190130
  Receipt Date: 20190130
  Transmission Date: 20190417
  Serious: No
  Sender: FDA-Public Use
  Company Number: US-EXELIXIS-CABO-18017052

PATIENT
  Sex: Male

DRUGS (4)
  1. CABOMETYX [Suspect]
     Active Substance: CABOZANTINIB S-MALATE
     Dosage: 40 MG, QD ON AN EMPTY STOMACH 1 H BEFORE OR 2 H AFTER FOOD)
     Route: 048
     Dates: start: 20180327
  2. HYDROCHLOROTH [Concomitant]
     Active Substance: HYDROCHLOROTHIAZIDE
  3. SOTALOL HCL [Concomitant]
     Active Substance: SOTALOL
  4. CABOMETYX [Suspect]
     Active Substance: CABOZANTINIB S-MALATE
     Indication: RENAL CANCER
     Dosage: 60 MG, QD ON AN EMPTY STOMACH 1 H BEFORE OR 2 H AFTER FOOD)
     Route: 048
     Dates: start: 20180228, end: 2018

REACTIONS (3)
  - Peripheral swelling [Recovered/Resolved]
  - Dysgeusia [Recovered/Resolved]
  - Pain in extremity [Recovered/Resolved]

NARRATIVE: CASE EVENT DATE: 2018
